FAERS Safety Report 23493758 (Version 1)
Quarter: 2024Q1

REPORT INFORMATION
  Report Type: Spontaneous
  Country: US (occurrence: None)
  Receive Date: 20240206
  Receipt Date: 20240206
  Transmission Date: 20240410
  Serious: Yes (Hospitalization, Disabling, Other)
  Sender: FDA-Public Use
  Company Number: None

PATIENT
  Age: 65 Year
  Sex: Female
  Weight: 81 kg

DRUGS (4)
  1. GABAPENTIN [Suspect]
     Active Substance: GABAPENTIN
     Dosage: OTHER QUANTITY : 1 CAPSULE(S);?
     Route: 048
     Dates: start: 20231220, end: 20240114
  2. OLMESARTAN [Concomitant]
     Active Substance: OLMESARTAN
  3. Breo [Concomitant]
  4. SIMVASTATIN [Concomitant]
     Active Substance: SIMVASTATIN

REACTIONS (21)
  - Confusional state [None]
  - Memory impairment [None]
  - Dyspnoea [None]
  - Fatigue [None]
  - Blood pressure increased [None]
  - Drug dependence [None]
  - Insomnia [None]
  - Suicidal ideation [None]
  - Withdrawal syndrome [None]
  - Anxiety [None]
  - Nausea [None]
  - Mobility decreased [None]
  - Impaired work ability [None]
  - Abdominal pain upper [None]
  - Fatigue [None]
  - Panic attack [None]
  - Weight decreased [None]
  - Myalgia [None]
  - Tremor [None]
  - Off label use [None]
  - Migraine [None]

NARRATIVE: CASE EVENT DATE: 20231226
